FAERS Safety Report 7020611-7 (Version None)
Quarter: 2010Q3

REPORT INFORMATION
  Report Type: 
  Country: None (occurrence: None)
  Receive Date: 20100927
  Receipt Date: 20100917
  Transmission Date: 20110219
  Serious: Yes (Other)
  Sender: FDA-Public Use
  Company Number: 2010SP049815

PATIENT
  Age: 35 Year
  Sex: Male
  Weight: 150 kg

DRUGS (1)
  1. ROCURONIUM BROMIDE [Suspect]
     Indication: SURGERY

REACTIONS (1)
  - ENDOTRACHEAL INTUBATION COMPLICATION [None]
